FAERS Safety Report 6864023-5 (Version None)
Quarter: 2010Q3

REPORT INFORMATION
  Report Type: 
  Country: None (occurrence: None)
  Receive Date: 20100721
  Receipt Date: 20080405
  Transmission Date: 20110219
  Serious: No
  Sender: FDA-Public Use
  Company Number: US-PFIZER INC-2008024255

PATIENT
  Sex: Male
  Weight: 54.5 kg

DRUGS (9)
  1. CHANTIX [Suspect]
     Indication: SMOKING CESSATION THERAPY
     Dates: start: 20080310
  2. SEROQUEL [Concomitant]
  3. LEXAPRO [Concomitant]
  4. AVAPRO [Concomitant]
  5. TRAZODONE HYDROCHLORIDE [Concomitant]
  6. TOPROL-XL [Concomitant]
  7. OTHER HYPNOTICS AND SEDATIVES [Concomitant]
  8. ZOCOR [Concomitant]
     Indication: BLOOD CHOLESTEROL INCREASED
  9. ZYPREXA [Concomitant]

REACTIONS (7)
  - ANGER [None]
  - CONFUSIONAL STATE [None]
  - DECREASED INTEREST [None]
  - DEPRESSION [None]
  - INSOMNIA [None]
  - LAZINESS [None]
  - MOOD SWINGS [None]
